FAERS Safety Report 4532201-6 (Version None)
Quarter: 2004Q4

REPORT INFORMATION
  Report Type: 
  Country: None (occurrence: None)
  Receive Date: 20041217
  Receipt Date: 20041206
  Transmission Date: 20050328
  Serious: Yes (Hospitalization, Other)
  Sender: FDA-Public Use
  Company Number: 2004105722

PATIENT
  Age: 57 Year
  Sex: Male
  Weight: 100 kg

DRUGS (1)
  1. TAHOR (ATORVASTATIN) [Suspect]
     Indication: ILL-DEFINED DISORDER
     Dosage: 80 MG, DAILY, ORAL
     Route: 048
     Dates: start: 20040831, end: 20040907

REACTIONS (8)
  - ANTIBODY TEST POSITIVE [None]
  - ATRIOVENTRICULAR BLOCK COMPLETE [None]
  - CHOLELITHIASIS [None]
  - CONDUCTION DISORDER [None]
  - HEPATITIS [None]
  - LEFT VENTRICULAR FAILURE [None]
  - PYREXIA [None]
  - WHITE BLOOD CELL COUNT INCREASED [None]
